FAERS Safety Report 5060241-X (Version None)
Quarter: 2006Q3

REPORT INFORMATION
  Report Type: 
  Country: None (occurrence: None)
  Receive Date: 20060724
  Receipt Date: 20060505
  Transmission Date: 20061208
  Serious: Yes (Other)
  Sender: FDA-Public Use
  Company Number: GB-MERCK-0605GBR00035

PATIENT
  Age: 71 Year
  Sex: Male

DRUGS (5)
  1. ZOCOR [Suspect]
     Indication: HYPERCHOLESTEROLAEMIA
     Route: 048
     Dates: start: 20020910, end: 20060322
  2. ASPIRIN [Concomitant]
     Indication: GLOBAL AMNESIA
     Route: 048
     Dates: start: 20050715
  3. ASPIRIN [Concomitant]
     Indication: TRANSIENT ISCHAEMIC ATTACK
     Route: 048
     Dates: start: 20050715
  4. DOTHIEPIN HYDROCHLORIDE [Concomitant]
     Route: 048
     Dates: start: 20050314, end: 20060111
  5. ACETAMINOPHEN AND PROPOXYPHENE HYDROCHLORIDE [Concomitant]
     Route: 048
     Dates: start: 20021015, end: 20060111

REACTIONS (1)
  - GLOBAL AMNESIA [None]
